FAERS Safety Report 10139533 (Version 3)
Quarter: 2014Q2

REPORT INFORMATION
  Report Type: Spontaneous
  Country: DE (occurrence: DE)
  Receive Date: 20140429
  Receipt Date: 20140613
  Transmission Date: 20141212
  Serious: Yes (Death, Hospitalization)
  Sender: FDA-Public Use
  Company Number: DE-B.I. PHARMACEUTICALS,INC./RIDGEFIELD-2014-BI-18539DE

PATIENT
  Age: 82 Year
  Sex: Female
  Weight: 70 kg

DRUGS (6)
  1. PRADAXA [Suspect]
     Indication: ATRIAL FIBRILLATION
     Dosage: 220 MG
     Route: 065
     Dates: start: 20140128
  2. BISOPROLOL [Concomitant]
     Route: 065
  3. RAMIPRIL [Concomitant]
     Route: 065
  4. CARMEN [Concomitant]
     Route: 065
  5. VIGANTOLETTEN [Concomitant]
     Route: 065
  6. OTHER MEDICATIONS [Concomitant]
     Route: 065

REACTIONS (3)
  - Cerebrovascular accident [Fatal]
  - Myocardial infarction [Unknown]
  - Off label use [Unknown]
